FAERS Safety Report 7619601-2 (Version None)
Quarter: 2011Q3

REPORT INFORMATION
  Report Type: 
  Country: None (occurrence: None)
  Receive Date: 20110719
  Receipt Date: 20081001
  Transmission Date: 20111222
  Serious: Yes (Other)
  Sender: FDA-Public Use
  Company Number: US-BAYER-200836276NA

PATIENT
  Age: 53 Year
  Sex: Male
  Weight: 111 kg

DRUGS (23)
  1. DOPAMINE HCL [Concomitant]
     Dosage: UNK
     Route: 042
     Dates: start: 20021206
  2. RED BLOOD CELLS [Concomitant]
     Dosage: 2 U, ONCE
     Route: 042
     Dates: start: 20021210
  3. TRASYLOL [Suspect]
     Indication: PRODUCT USED FOR UNKNOWN INDICATION
     Dosage: NO DOCUMENTATION THAT TRASYLOL WAS
     Route: 042
     Dates: start: 20021209
  4. ACETYLSALICYLIC ACID SRT [Concomitant]
     Dosage: 325 MG, QD
     Route: 048
     Dates: start: 20021205
  5. CLONIDINE [Concomitant]
     Dosage: UNK
     Dates: start: 20020101
  6. HEPARIN [Concomitant]
     Dosage: UNK
     Route: 042
     Dates: start: 20021209, end: 20021209
  7. LASIX [Concomitant]
     Dosage: 10 MG/HOUR THEN INCREASED TO 20 MG/HOUR
     Route: 042
     Dates: start: 20021210
  8. ACETYLCYSTEINE [Concomitant]
     Dosage: 600 MG INITIAL DOSE
     Route: 048
     Dates: start: 20021206, end: 20021208
  9. LIPITOR [Concomitant]
     Dosage: 10 MG, QD
     Route: 048
  10. SODIUM BICARBONATE [Concomitant]
     Dosage: 1 ML
     Dates: start: 20021210
  11. ACETYLCYSTEINE [Concomitant]
     Dosage: TWICE DAILY X 48 HOURS
     Route: 048
     Dates: start: 20021206, end: 20021208
  12. REGULAR INSULIN [Concomitant]
     Dosage: UNK
     Dates: start: 20021209
  13. REGULAR INSULIN [Concomitant]
     Dosage: 10 UNITS
     Dates: start: 20021210
  14. AMICAR [Concomitant]
  15. CARDIZEM [Concomitant]
     Dosage: 360 MG, QD
     Route: 048
  16. PROTAMINE SULFATE [Concomitant]
     Dosage: UNK
     Route: 042
     Dates: start: 20021209, end: 20021209
  17. LASIX [Concomitant]
     Dosage: 60 MG
     Route: 042
     Dates: start: 20021210
  18. CEFUROXIME [Concomitant]
     Dosage: 2 GRAM
     Route: 042
     Dates: start: 20021209, end: 20021209
  19. SODIUM BICARBONATE [Concomitant]
     Dosage: ? AMP
     Dates: start: 20021209
  20. DIOVAN [Concomitant]
     Dosage: 160 MG, QD
  21. NORVASC [Concomitant]
  22. TOPROL-XL [Concomitant]
     Dosage: 50 MG, QD
     Route: 048
     Dates: start: 20021205
  23. LASIX [Concomitant]
     Dosage: 100 MG
     Route: 042
     Dates: start: 20021210

REACTIONS (13)
  - ANHEDONIA [None]
  - STRESS [None]
  - FEAR [None]
  - RENAL IMPAIRMENT [None]
  - RENAL INJURY [None]
  - EMOTIONAL DISTRESS [None]
  - CEREBROVASCULAR ACCIDENT [None]
  - UNEVALUABLE EVENT [None]
  - INJURY [None]
  - NEPHROPATHY [None]
  - RENAL FAILURE [None]
  - ANXIETY [None]
  - PAIN [None]
